FAERS Safety Report 10265146 (Version 1)
Quarter: 2014Q2

REPORT INFORMATION
  Report Type: Report from Study
  Country: KR (occurrence: KR)
  Receive Date: 20140627
  Receipt Date: 20140627
  Transmission Date: 20141212
  Serious: Yes (Hospitalization)
  Sender: FDA-Public Use
  Company Number: KR-OTSUKA-JP-2014-14747

PATIENT
  Age: 41 Year
  Sex: Male
  Weight: 65 kg

DRUGS (11)
  1. BLINDED ASPIRIN [Suspect]
     Indication: CEREBRAL INFARCTION
     Dosage: UNK
     Dates: start: 20111015, end: 20111024
  2. BLINDED PLETAAL [Suspect]
     Indication: CEREBRAL INFARCTION
     Dosage: UNK
     Dates: start: 20111015, end: 20111024
  3. GASTER D [Concomitant]
     Dosage: 20 MG MILLIGRAM(S), BID
     Route: 048
     Dates: start: 20111014, end: 20111024
  4. GLUCOPHAGE [Concomitant]
     Dosage: 500 MG MILLIGRAM(S), BID
     Route: 048
     Dates: start: 20111014, end: 20111024
  5. SOLETON [Concomitant]
     Dosage: 80 MG MILLIGRAM(S), TID
     Route: 048
     Dates: start: 20111014, end: 20111020
  6. BONALING-A [Concomitant]
     Dosage: 50 MG MILLIGRAM(S), QD
     Route: 048
     Dates: start: 20111020
  7. KEROMIN [Concomitant]
     Dosage: 30 MG MILLIGRAM(S), BID
     Route: 042
     Dates: start: 20111020
  8. GASTER D [Concomitant]
     Dosage: 20 MG MILLIGRAM(S), QD
     Route: 042
     Dates: start: 20111020
  9. MACPERAN [Concomitant]
     Dosage: 10 MG MILLIGRAM(S), QD
     Route: 042
     Dates: start: 20111020
  10. NORMAL SALINE [Concomitant]
     Dosage: 10 ML MILLILITRE(S), QD
     Route: 042
     Dates: start: 20111020
  11. NORMAL SALINE [Concomitant]
     Dosage: 1000 ML MILLILITRE(S), QD
     Route: 042
     Dates: start: 20111020

REACTIONS (1)
  - Lateral medullary syndrome [Unknown]
